FAERS Safety Report 24436657 (Version 3)
Quarter: 2024Q4

REPORT INFORMATION
  Report Type: Report from Study
  Country: US (occurrence: US)
  Receive Date: 20241015
  Receipt Date: 20241203
  Transmission Date: 20250115
  Serious: Yes (Hospitalization, Disabling)
  Sender: SANOFI AVENTIS
  Company Number: US-SA-SAC20240820001006

PATIENT
  Age: 52 Year
  Sex: Female

DRUGS (21)
  1. CAPLACIZUMAB-YHDP [Suspect]
     Active Substance: CAPLACIZUMAB-YHDP
     Indication: Thrombotic thrombocytopenic purpura
     Dosage: 11 MG, QD
     Route: 058
     Dates: start: 20240809
  2. CAPLACIZUMAB-YHDP [Suspect]
     Active Substance: CAPLACIZUMAB-YHDP
     Indication: Thrombotic thrombocytopenic purpura
     Dosage: 11 MG, QD
     Route: 058
     Dates: start: 20240809
  3. CAPLACIZUMAB-YHDP [Suspect]
     Active Substance: CAPLACIZUMAB-YHDP
     Indication: Thrombotic thrombocytopenic purpura
     Dosage: 11 MG, QD
     Route: 058
     Dates: start: 20240809
  4. CAPLACIZUMAB-YHDP [Suspect]
     Active Substance: CAPLACIZUMAB-YHDP
     Indication: Thrombotic thrombocytopenic purpura
     Dosage: 11 MG, QD
     Route: 058
     Dates: start: 20240809
  5. CAPLACIZUMAB-YHDP [Suspect]
     Active Substance: CAPLACIZUMAB-YHDP
     Dosage: 11 MG, QD
     Route: 058
     Dates: start: 20240816
  6. CAPLACIZUMAB-YHDP [Suspect]
     Active Substance: CAPLACIZUMAB-YHDP
     Dosage: 11 MG, QD
     Route: 058
     Dates: start: 20240816
  7. CAPLACIZUMAB-YHDP [Suspect]
     Active Substance: CAPLACIZUMAB-YHDP
     Dosage: 11 MG, QD
     Route: 058
     Dates: start: 20240816
  8. CAPLACIZUMAB-YHDP [Suspect]
     Active Substance: CAPLACIZUMAB-YHDP
     Dosage: 11 MG, QD
     Route: 058
     Dates: start: 20240816
  9. RITUXIMAB [Concomitant]
     Active Substance: RITUXIMAB
     Indication: Thrombotic thrombocytopenic purpura
     Dosage: UNK
     Dates: start: 202408, end: 20240905
  10. PREDNISONE [Concomitant]
     Active Substance: PREDNISONE
     Indication: Thrombotic thrombocytopenic purpura
     Dosage: TAKES 7.5 TABLET  (75 MG) TABLET FOR 10 DAYS, THEN TAKES 6 TABLET  TABLET (60 MG) FOR 10 DAYS THEN T
  11. PREDNISONE [Concomitant]
     Active Substance: PREDNISONE
     Dosage: DECREASED HER PREDNISONE
     Dates: start: 202408
  12. HYDROCORTISONE [Concomitant]
     Active Substance: HYDROCORTISONE
     Dosage: 1 DF, BID (INSERT 1 SUPPOSITORY INTO THE RECTUM 2 TIMES A DAY FOR 30 DAYS) )
  13. INSULINA [INSULIN NOS] [Concomitant]
     Dosage: (70/30 NPH ) AN REGULAR HUMAN  TAKES 50 UNITS DAILY WITH STEROIDS AND 30 UNITS BEFORE DINNER, SYRING
  14. LISINOPRIL [Concomitant]
     Active Substance: LISINOPRIL
     Dosage: 1 DF, QD
     Route: 048
  15. MELATONIN [Concomitant]
     Active Substance: MELATONIN
     Dosage: 10 DF, QD
     Route: 048
  16. PANTOPRAZOLE [Concomitant]
     Active Substance: PANTOPRAZOLE
     Dosage: 1 DF, QD FOR 30 DAYS
     Route: 048
  17. PREDNISONE [Concomitant]
     Active Substance: PREDNISONE
     Indication: Thrombotic thrombocytopenic purpura
     Dosage: TAKES 7.5 MG TABLET FOR 10 DAYS, THEN TAKES 5 MG TABLET FOR 10 DAYS, TAKES 4 MG TABLET FOR 10 DAYS,
  18. SULFAMETHOXAZOLE\TRIMETHOPRIM [Concomitant]
     Active Substance: SULFAMETHOXAZOLE\TRIMETHOPRIM
     Dosage: 1 DF, TID
     Route: 048
  19. ACETAMINOPHEN [Concomitant]
     Active Substance: ACETAMINOPHEN
     Indication: Pain
     Dosage: 1 DF, EVERY 6 HOURS AS NEEDED
     Route: 048
  20. ACETAMINOPHEN [Concomitant]
     Active Substance: ACETAMINOPHEN
     Indication: Pyrexia
  21. METFORMIN [Concomitant]
     Active Substance: METFORMIN HYDROCHLORIDE
     Dosage: 1 DF, QD
     Route: 048

REACTIONS (16)
  - Muscular weakness [Not Recovered/Not Resolved]
  - Platelet count decreased [Recovering/Resolving]
  - ADAMTS13 activity decreased [Not Recovered/Not Resolved]
  - Blood lactate dehydrogenase increased [Not Recovered/Not Resolved]
  - Skin burning sensation [Not Recovered/Not Resolved]
  - Contusion [Not Recovered/Not Resolved]
  - Hypoaesthesia [Recovering/Resolving]
  - Paraesthesia [Recovering/Resolving]
  - Dyspnoea exertional [Not Recovered/Not Resolved]
  - Fatigue [Not Recovered/Not Resolved]
  - Myalgia [Not Recovered/Not Resolved]
  - Gingival bleeding [Not Recovered/Not Resolved]
  - Injection site pain [Unknown]
  - Epistaxis [Recovering/Resolving]
  - Injection site haemorrhage [Recovering/Resolving]
  - Off label use [Unknown]

NARRATIVE: CASE EVENT DATE: 20240801
